FAERS Safety Report 5817014-7 (Version None)
Quarter: 2008Q3

REPORT INFORMATION
  Report Type: 
  Country: None (occurrence: None)
  Receive Date: 20080722
  Receipt Date: 20080513
  Transmission Date: 20090109
  Serious: Yes (Life-Threatening, Hospitalization)
  Sender: FDA-Public Use
  Company Number: CH-BAYER-200814714GPV

PATIENT
  Age: 50 Year
  Sex: Male

DRUGS (5)
  1. ULTRAVIST 370 / IOPROMIDUM [Suspect]
     Indication: COMPUTERISED TOMOGRAM
     Dosage: AS USED: 120 ML
     Route: 042
     Dates: start: 20080205, end: 20080205
  2. PLAVIX [Concomitant]
     Route: 048
  3. CANDESARTAN CILEXETIL [Concomitant]
     Route: 048
  4. BISPHOSPHONAT [Concomitant]
     Route: 048
  5. MEFENACID / MEFENAMIC ACID [Concomitant]
     Route: 048

REACTIONS (8)
  - ANAPHYLACTOID SHOCK [None]
  - BALANCE DISORDER [None]
  - DYSPNOEA [None]
  - ERYTHEMA [None]
  - FACE OEDEMA [None]
  - RHABDOMYOLYSIS [None]
  - TYPE IV HYPERSENSITIVITY REACTION [None]
  - VENTRICULAR FIBRILLATION [None]
